FAERS Safety Report 18913241 (Version 1)
Quarter: 2021Q1

REPORT INFORMATION
  Report Type: Spontaneous
  Country: US (occurrence: US)
  Receive Date: 20210218
  Receipt Date: 20210218
  Transmission Date: 20210420
  Serious: Yes (Other)
  Sender: FDA-Public Use
  Company Number: US-BAYER-2021-068143

PATIENT
  Age: 62 Year
  Sex: Female

DRUGS (2)
  1. GENUINE BAYER ASPIRIN [Suspect]
     Active Substance: ASPIRIN
     Indication: PAIN
     Dosage: 1 DF, QD
     Route: 048
     Dates: end: 20210208
  2. ANAPROX [Suspect]
     Active Substance: NAPROXEN SODIUM

REACTIONS (3)
  - Ovarian neoplasm surgery [Unknown]
  - Incorrect product administration duration [Unknown]
  - Product prescribing issue [Unknown]
